FAERS Safety Report 7716152-1 (Version None)
Quarter: 2011Q3

REPORT INFORMATION
  Report Type: 
  Country: None (occurrence: None)
  Receive Date: 20110829
  Receipt Date: 20110821
  Transmission Date: 20111222
  Serious: Yes (Other)
  Sender: FDA-Public Use
  Company Number: US-ABBOTT-11P-163-0721325-00

PATIENT
  Age: 72 Year
  Sex: Female

DRUGS (10)
  1. ZOLOFT [Concomitant]
     Indication: DEPRESSION
     Dosage: GENERIC
  2. HUMIRA [Suspect]
     Indication: PSORIATIC ARTHROPATHY
     Dates: start: 20110218, end: 20110730
  3. VITAMIN TAB [Concomitant]
     Indication: PRODUCT USED FOR UNKNOWN INDICATION
     Dosage: DAILY
  4. METHOTREXATE [Concomitant]
     Indication: PRODUCT USED FOR UNKNOWN INDICATION
  5. LOVASTATIN [Concomitant]
     Indication: BLOOD CHOLESTEROL INCREASED
  6. FOLIC ACID [Concomitant]
     Indication: VITAMIN SUPPLEMENTATION
  7. ALPRAZOLAM [Concomitant]
     Indication: PRODUCT USED FOR UNKNOWN INDICATION
  8. SERTRALINE HYDROCHLORIDE [Concomitant]
     Indication: PRODUCT USED FOR UNKNOWN INDICATION
  9. EVISTA [Concomitant]
     Indication: OSTEOPENIA
  10. RANITIDINE [Concomitant]
     Indication: PRODUCT USED FOR UNKNOWN INDICATION

REACTIONS (9)
  - DRUG EFFECT DECREASED [None]
  - LOCAL SWELLING [None]
  - JOINT SWELLING [None]
  - CYANOSIS [None]
  - ARTHRALGIA [None]
  - ABDOMINAL PAIN LOWER [None]
  - INGUINAL HERNIA [None]
  - INJECTION SITE PAIN [None]
  - UMBILICAL HERNIA [None]
